FAERS Safety Report 5909020-9 (Version None)
Quarter: 2008Q4

REPORT INFORMATION
  Report Type: 
  Country: None (occurrence: None)
  Receive Date: 20081006
  Receipt Date: 20081001
  Transmission Date: 20090506
  Serious: Yes (Other)
  Sender: FDA-Public Use
  Company Number: DE-BRISTOL-MYERS SQUIBB COMPANY-14354427

PATIENT
  Age: 31 Year
  Sex: Male
  Weight: 80 kg

DRUGS (4)
  1. ABILIFY [Suspect]
     Indication: SCHIZOPHRENIA, DISORGANISED TYPE
     Dates: start: 20080501
  2. MELPERONE HCL [Suspect]
     Indication: SCHIZOPHRENIA, DISORGANISED TYPE
     Dates: start: 20080401, end: 20080901
  3. DOGMATIL [Concomitant]
     Indication: SCHIZOPHRENIA, DISORGANISED TYPE
     Dosage: DOSAGE FORM- TABLETS
     Dates: start: 20030101
  4. CYMBALTA [Concomitant]
     Indication: SCHIZOPHRENIA, DISORGANISED TYPE
     Dosage: DOSAGE FORM- TABLETS
     Dates: start: 20051001

REACTIONS (1)
  - HICCUPS [None]
